FAERS Safety Report 13934406 (Version 2)
Quarter: 2018Q1

REPORT INFORMATION
  Report Type: Spontaneous
  Country: US (occurrence: US)
  Receive Date: 20170905
  Receipt Date: 20180105
  Transmission Date: 20180508
  Serious: Yes (Death)
  Sender: FDA-Public Use
  Company Number: US-ALVOGEN-2017-ALVOGEN-093372

PATIENT
  Age: 21 Year
  Sex: Male

DRUGS (6)
  1. MITRAGYNINE [Suspect]
     Active Substance: MITRAGYNINE\HERBALS
     Indication: COMPLETED SUICIDE
  2. 3-METHOXYPHENCYCLIDINE [Suspect]
     Active Substance: 3-METHOXYPHENCYCLIDINE
     Indication: COMPLETED SUICIDE
  3. PAROXETINE. [Suspect]
     Active Substance: PAROXETINE
     Indication: COMPLETED SUICIDE
  4. BUPROPION. [Suspect]
     Active Substance: BUPROPION
     Indication: COMPLETED SUICIDE
  5. ALCOHOL. [Suspect]
     Active Substance: ALCOHOL
     Indication: COMPLETED SUICIDE
  6. DELORAZEPAM [Suspect]
     Active Substance: DELORAZEPAM
     Indication: COMPLETED SUICIDE

REACTIONS (1)
  - Toxicity to various agents [Fatal]
